FAERS Safety Report 7820733-4 (Version None)
Quarter: 2011Q4

REPORT INFORMATION
  Report Type: 
  Country: None (occurrence: None)
  Receive Date: 20111018
  Receipt Date: 20111011
  Transmission Date: 20120403
  Serious: Yes (Other)
  Sender: FDA-Public Use
  Company Number: JP-PFIZER INC-2011241928

PATIENT
  Sex: Male

DRUGS (2)
  1. XALATAN [Suspect]
     Dosage: UNK
  2. SANCOBA [Concomitant]
     Dosage: UNK

REACTIONS (4)
  - DIZZINESS [None]
  - VISUAL ACUITY REDUCED [None]
  - EYE MOVEMENT DISORDER [None]
  - PHOTOPHOBIA [None]
